FAERS Safety Report 4436098-4 (Version None)
Quarter: 2004Q3

REPORT INFORMATION
  Report Type: 
  Country: None (occurrence: None)
  Receive Date: 20040726
  Receipt Date: 20040518
  Transmission Date: 20050211
  Serious: No
  Sender: FDA-Public Use
  Company Number: USA030435370

PATIENT
  Age: 65 Year
  Sex: Female
  Weight: 73 kg

DRUGS (4)
  1. FORTEO [Suspect]
     Indication: OSTEOPOROSIS
     Dosage: 20 UG DAY
     Dates: start: 20030424
  2. ALTACE [Concomitant]
  3. METOPROLOL [Concomitant]
  4. CALCIUM [Concomitant]

REACTIONS (10)
  - DIZZINESS [None]
  - DYSPNOEA [None]
  - FEELING ABNORMAL [None]
  - HEADACHE [None]
  - KERATOCONJUNCTIVITIS SICCA [None]
  - LENS DISORDER [None]
  - MIDDLE INSOMNIA [None]
  - NERVOUSNESS [None]
  - PAIN IN EXTREMITY [None]
  - VISION BLURRED [None]
